FAERS Safety Report 17175872 (Version 1)
Quarter: 2019Q4

REPORT INFORMATION
  Report Type: Spontaneous
  Country: US (occurrence: US)
  Receive Date: 20191219
  Receipt Date: 20191219
  Transmission Date: 20200122
  Serious: No
  Sender: FDA-Public Use
  Company Number: US-ZYDUS-035220

PATIENT
  Sex: Female

DRUGS (2)
  1. NITROGLYCERIN. [Suspect]
     Active Substance: NITROGLYCERIN
     Indication: ANGINA PECTORIS
     Dosage: 0.4 MG/HR
     Route: 062
     Dates: start: 2016
  2. NITROGLYCERIN. [Suspect]
     Active Substance: NITROGLYCERIN
     Indication: ANGINA PECTORIS
     Dosage: 0.4 MG/HR
     Route: 062
     Dates: start: 201812, end: 201812

REACTIONS (5)
  - Intentional product use issue [Not Recovered/Not Resolved]
  - Application site rash [Not Recovered/Not Resolved]
  - Application site rash [Recovered/Resolved]
  - Dyspnoea exertional [Unknown]
  - Scab [Not Recovered/Not Resolved]

NARRATIVE: CASE EVENT DATE: 2018
